FAERS Safety Report 5506448-6 (Version None)
Quarter: 2007Q4

REPORT INFORMATION
  Report Type: 
  Country: None (occurrence: None)
  Receive Date: 20071101
  Receipt Date: 20071101
  Transmission Date: 20080405
  Serious: No
  Sender: FDA-Public Use
  Company Number: None

PATIENT
  Age: 45 Year
  Sex: Female

DRUGS (1)
  1. HALOPERIDOL [Suspect]
     Dosage: 2.5 MG DAILY PO
     Route: 048

REACTIONS (1)
  - BLOOD PROLACTIN INCREASED [None]
